FAERS Safety Report 8559835-6 (Version None)
Quarter: 2012Q3

REPORT INFORMATION
  Report Type: 
  Country: None (occurrence: None)
  Receive Date: 20120802
  Receipt Date: 20120724
  Transmission Date: 20120928
  Serious: Yes (Death)
  Sender: FDA-Public Use
  Company Number: CN-COVIDIEN/TYCO HEALTHCARE/MALLINCKRODT-T201202683

PATIENT
  Age: 78 Year
  Sex: Female

DRUGS (2)
  1. OPTIRAY 160 [Suspect]
     Dosage: 100 ML, SINGLE
     Route: 042
     Dates: start: 20120619, end: 20120619
  2. SODIUM CHLORIDE [Concomitant]
     Indication: INJECTION
     Dosage: 30 ML, SINGLE
     Route: 042
     Dates: start: 20120619, end: 20120619

REACTIONS (5)
  - ANAPHYLACTIC SHOCK [None]
  - RASH GENERALISED [None]
  - FACE OEDEMA [None]
  - DISSEMINATED INTRAVASCULAR COAGULATION [None]
  - BLOOD PRESSURE DECREASED [None]
